FAERS Safety Report 4468071-4 (Version None)
Quarter: 2004Q4

REPORT INFORMATION
  Report Type: 
  Country: None (occurrence: None)
  Receive Date: 20041004
  Receipt Date: 20040916
  Transmission Date: 20050328
  Serious: Yes (Hospitalization)
  Sender: FDA-Public Use
  Company Number: 2004-DE-04877GD

PATIENT
  Age: 31 Year
  Sex: Female

DRUGS (4)
  1. DIPYRIDAMOLE [Suspect]
     Indication: ANTICOAGULANT THERAPY
     Dosage: 150 MG TWICE DAILY
  2. ACETYLSALICYLIC ACID (ACETYLSALICYLIC ACID    BAYER) [Suspect]
     Dosage: 81 MG
  3. WARFARIN (WARFARIN) [Suspect]
     Indication: ANTICOAGULANT THERAPY
     Dosage: 5.5 MG
  4. ESTROGEN PROGESTERONE CONTRACEPTIVE (HORMONAL CONTRACEPTIVES FOR SYSTE [Suspect]
     Indication: CONTRACEPTION

REACTIONS (4)
  - ACUTE MYOCARDIAL INFARCTION [None]
  - ANTICOAGULATION DRUG LEVEL BELOW THERAPEUTIC [None]
  - CARDIAC VALVE REPLACEMENT COMPLICATION [None]
  - CORONARY ARTERY EMBOLISM [None]
